FAERS Safety Report 20456737 (Version 7)
Quarter: 2022Q1

REPORT INFORMATION
  Report Type: Spontaneous
  Country: SK (occurrence: SK)
  Receive Date: 20220210
  Receipt Date: 20220329
  Transmission Date: 20220423
  Serious: Yes (Hospitalization, Other)
  Sender: FDA-Public Use
  Company Number: SK-MYLANLABS-2022M1009115

PATIENT
  Age: 22 Year
  Sex: Male

DRUGS (8)
  1. IBUPROFEN [Interacting]
     Active Substance: IBUPROFEN
     Indication: Headache
     Dosage: 400 MILLIGRAM, TOTAL
     Route: 048
  2. IBUPROFEN [Interacting]
     Active Substance: IBUPROFEN
     Indication: Pain
     Dosage: 1 DOSAGE FORM, TOTAL
  3. DICLOFENAC [Interacting]
     Active Substance: DICLOFENAC
     Indication: Pain
     Dosage: 100 MILLIGRAM, TOTAL
     Route: 048
  4. DICLOFENAC [Interacting]
     Active Substance: DICLOFENAC
     Indication: Headache
  5. ALPRAZOLAM [Interacting]
     Active Substance: ALPRAZOLAM
     Indication: Anxiety
     Dosage: 0.5 MILLIGRAM, TOTAL
     Route: 048
  6. ALPRAZOLAM [Interacting]
     Active Substance: ALPRAZOLAM
     Dosage: 1 DOSAGE FORM, TOTAL
  7. ALCOHOL [Suspect]
     Active Substance: ALCOHOL
     Indication: Alcohol abuse
     Dosage: 9 BEERS (0.5L) IN TOTAL WITHIN 2 DAYS
     Route: 048
  8. COCAINE [Interacting]
     Active Substance: COCAINE
     Indication: Drug abuse
     Dosage: 1 DOSAGE FORM, TOTAL (ROUTE OF ADMINISTRATION INTRA-NASAL)
     Route: 055

REACTIONS (9)
  - Dystonia [Recovered/Resolved]
  - Myoclonus [Recovered/Resolved]
  - Seizure [Recovered/Resolved]
  - Condition aggravated [Recovered/Resolved]
  - Muscle spasms [Recovered/Resolved]
  - Muscle twitching [Recovered/Resolved]
  - Dyskinesia [Recovered/Resolved]
  - Drug interaction [Recovered/Resolved]
  - Alcohol interaction [Recovered/Resolved]
